FAERS Safety Report 25772528 (Version 3)
Quarter: 2025Q4

REPORT INFORMATION
  Report Type: Spontaneous
  Country: US (occurrence: US)
  Receive Date: 20250908
  Receipt Date: 20251010
  Transmission Date: 20260118
  Serious: Yes (Hospitalization, Other)
  Sender: AUROBINDO
  Company Number: US-AUROBINDO-AUR-APL-2025-044630

PATIENT
  Age: 66 Year
  Sex: Female
  Weight: 48.4 kg

DRUGS (1)
  1. SULFAMETHOXAZOLE\TRIMETHOPRIM [Suspect]
     Active Substance: SULFAMETHOXAZOLE\TRIMETHOPRIM
     Indication: Urinary tract infection
     Dosage: 400-80 MG TABLET 1 TABLET BID
     Route: 065
     Dates: start: 20250612, end: 20250616

REACTIONS (5)
  - Stevens-Johnson syndrome [Recovered/Resolved]
  - Dermatitis allergic [Recovered/Resolved]
  - Angular cheilitis [Recovered/Resolved]
  - Mucosal inflammation [Recovered/Resolved]
  - Product quality issue [Unknown]
